FAERS Safety Report 23835724 (Version 1)
Quarter: 2024Q2

REPORT INFORMATION
  Report Type: Other
  Country: CN (occurrence: None)
  Receive Date: 20240509
  Receipt Date: 20240509
  Transmission Date: 20240716
  Serious: Yes (Other)
  Sender: FDA-Public Use
  Company Number: CN-ROCHE-3450332

PATIENT

DRUGS (3)
  1. BEVACIZUMAB [Suspect]
     Active Substance: BEVACIZUMAB
     Indication: Colorectal cancer metastatic
     Route: 041
  2. SINTILIMAB [Suspect]
     Active Substance: SINTILIMAB
     Indication: Colorectal cancer metastatic
     Route: 042
  3. TUCIDINOSTAT [Suspect]
     Active Substance: TUCIDINOSTAT
     Indication: Colorectal cancer metastatic
     Route: 048

REACTIONS (80)
  - Diarrhoea [Unknown]
  - Thrombocytopenia [Unknown]
  - Proteinuria [Unknown]
  - Neutropenia [Unknown]
  - Anal fistula [Unknown]
  - Anaemia [Unknown]
  - Hypocalcaemia [Unknown]
  - Intervertebral disc protrusion [Unknown]
  - Biliary tract infection [Unknown]
  - Large intestine perforation [Unknown]
  - Hepatic failure [Unknown]
  - Septic shock [Unknown]
  - Leukopenia [Unknown]
  - Myalgia [Unknown]
  - Pneumonia [Unknown]
  - Lymphopenia [Unknown]
  - Blood bilirubin increased [Unknown]
  - Aspartate aminotransferase increased [Unknown]
  - Rash [Unknown]
  - Cough [Unknown]
  - Blood thyroid stimulating hormone decreased [Unknown]
  - Tachypnoea [Unknown]
  - Productive cough [Unknown]
  - Decreased appetite [Unknown]
  - Vomiting [Unknown]
  - Hypoaesthesia [Unknown]
  - Hypoalbuminaemia [Unknown]
  - Oedema [Unknown]
  - Haematochezia [Unknown]
  - Abdominal pain [Unknown]
  - Dry mouth [Unknown]
  - Pruritus [Unknown]
  - Asthenia [Unknown]
  - Gingival bleeding [Unknown]
  - Proctalgia [Unknown]
  - Pyrexia [Unknown]
  - Muscle spasms [Unknown]
  - Stomatitis [Unknown]
  - COVID-19 [Unknown]
  - Sinus tachycardia [Unknown]
  - Insomnia [Unknown]
  - Alanine aminotransferase increased [Unknown]
  - Arthralgia [Unknown]
  - Skin exfoliation [Unknown]
  - Constipation [Unknown]
  - Nausea [Unknown]
  - Blood creatine phosphokinase increased [Unknown]
  - Amylase increased [Unknown]
  - Abdominal distension [Unknown]
  - Chest pain [Unknown]
  - Lipase increased [Unknown]
  - Hypersensitivity [Unknown]
  - Headache [Unknown]
  - Weight decreased [Unknown]
  - Haematuria [Unknown]
  - Calculus bladder [Unknown]
  - Dyspnoea [Unknown]
  - Blood thyroid stimulating hormone increased [Unknown]
  - Epistaxis [Unknown]
  - Prostate infection [Unknown]
  - Bone pain [Unknown]
  - Lower respiratory tract congestion [Unknown]
  - Blood creatinine increased [Unknown]
  - Hyperthyroidism [Unknown]
  - Hypothyroidism [Unknown]
  - Hypokalaemia [Unknown]
  - Haemoptysis [Unknown]
  - Vitreous haemorrhage [Unknown]
  - Anal haemorrhage [Unknown]
  - Dysphagia [Unknown]
  - Haemorrhoids [Unknown]
  - Colitis [Unknown]
  - Rhinitis [Unknown]
  - Myocarditis [Unknown]
  - Palpitations [Unknown]
  - Dysphonia [Unknown]
  - Herpes zoster [Unknown]
  - Urticaria [Unknown]
  - Erythema [Unknown]
  - Skin hyperpigmentation [Unknown]
